FAERS Safety Report 5114892-4 (Version None)
Quarter: 2006Q3

REPORT INFORMATION
  Report Type: 
  Country: None (occurrence: None)
  Receive Date: 20060922
  Receipt Date: 20060913
  Transmission Date: 20061208
  Serious: Yes (Hospitalization)
  Sender: FDA-Public Use
  Company Number: 2006SP003269

PATIENT
  Sex: Female

DRUGS (9)
  1. XOPENEX [Suspect]
     Indication: ASTHMA
     Dosage: 45 UG; INHALATION
     Route: 055
     Dates: start: 20060913
  2. XOPENEX [Suspect]
     Indication: BRONCHITIS
     Dosage: 45 UG; INHALATION
     Route: 055
     Dates: start: 20060913
  3. FENTANYL [Concomitant]
  4. ALBUTEROL [Concomitant]
  5. AMBIEN [Concomitant]
  6. XANAX [Concomitant]
  7. SINGULAIR [Concomitant]
  8. ASPIRIN [Concomitant]
  9. MAXZIDE [Concomitant]

REACTIONS (3)
  - CHOKING [None]
  - FOREIGN BODY ASPIRATION [None]
  - SENSATION OF FOREIGN BODY [None]
